FAERS Safety Report 5196578-3 (Version None)
Quarter: 2006Q4

REPORT INFORMATION
  Report Type: 
  Country: None (occurrence: None)
  Receive Date: 20061228
  Receipt Date: 20061228
  Transmission Date: 20070319
  Serious: Yes (Hospitalization)
  Sender: FDA-Public Use
  Company Number: None

PATIENT
  Sex: Female
  Weight: 66.2252 kg

DRUGS (4)
  1. TOPOTECAN 3 MG/M2 [Suspect]
     Indication: SMALL CELL CARCINOMA
     Dosage: 3MG/M2   D 1,8,15 Q28   IV
     Route: 042
     Dates: start: 20061221
  2. TOPOTECAN 3 MG/M2 [Suspect]
     Indication: VAGINAL CANCER
     Dosage: 3MG/M2   D 1,8,15 Q28   IV
     Route: 042
     Dates: start: 20061221
  3. PS-341   1.3MG/M2 [Suspect]
     Indication: SMALL CELL CARCINOMA
     Dosage: 1.6MG/M2    D 1,8,15  Q28   IV
     Route: 042
     Dates: start: 20061221
  4. PS-341   1.3MG/M2 [Suspect]
     Indication: VAGINAL CANCER
     Dosage: 1.6MG/M2    D 1,8,15  Q28   IV
     Route: 042
     Dates: start: 20061221

REACTIONS (2)
  - ABDOMINAL PAIN [None]
  - VOMITING [None]
